FAERS Safety Report 16907543 (Version 3)
Quarter: 2019Q4

REPORT INFORMATION
  Report Type: Spontaneous
  Country: SG (occurrence: SG)
  Receive Date: 20191011
  Receipt Date: 20191127
  Transmission Date: 20200122
  Serious: Yes (Life-Threatening, Hospitalization, Other)
  Sender: FDA-Public Use
  Company Number: SG-ACCORD-156514

PATIENT
  Age: 25 Year
  Sex: Male

DRUGS (2)
  1. PARACETAMOL [Suspect]
     Active Substance: ACETAMINOPHEN
     Dosage: 26 TABLETS
     Route: 048
  2. AMLODIPINE [Suspect]
     Active Substance: AMLODIPINE BESYLATE
     Dosage: INGESTION OF 550 MG (110 TABLETS)
     Route: 048

REACTIONS (13)
  - Somnolence [Unknown]
  - White blood cell count increased [Unknown]
  - Suicide attempt [Unknown]
  - Hypotension [Recovered/Resolved]
  - Lactic acidosis [Unknown]
  - Right ventricular dysfunction [Unknown]
  - Toxicity to various agents [Unknown]
  - Mental disorder [Unknown]
  - Tachycardia [Recovered/Resolved]
  - Hypokalaemia [Unknown]
  - Shock [Recovered/Resolved]
  - Left ventricular dysfunction [Unknown]
  - Overdose [Unknown]
